FAERS Safety Report 6986462-4 (Version None)
Quarter: 2010Q3

REPORT INFORMATION
  Report Type: 
  Country: None (occurrence: None)
  Receive Date: 20100915
  Receipt Date: 20090728
  Transmission Date: 20110219
  Serious: No
  Sender: FDA-Public Use
  Company Number: US-WYE-H09919409

PATIENT
  Sex: Male

DRUGS (4)
  1. PRISTIQ [Suspect]
     Indication: MAJOR DEPRESSION
     Dosage: 50 MG, FREQUENCY NOT SPECIFIED
     Route: 048
     Dates: start: 20090115
  2. PRISTIQ [Suspect]
     Indication: GENERALISED ANXIETY DISORDER
  3. ABILIFY [Concomitant]
  4. STRATTERA [Concomitant]

REACTIONS (2)
  - HYPERHIDROSIS [None]
  - TINEA PEDIS [None]
